FAERS Safety Report 8521177-2 (Version None)
Quarter: 2012Q3

REPORT INFORMATION
  Report Type: 
  Country: None (occurrence: None)
  Receive Date: 20120719
  Receipt Date: 20120716
  Transmission Date: 20120928
  Serious: Yes (Other)
  Sender: FDA-Public Use
  Company Number: CA-ELI_LILLY_AND_COMPANY-CA201206006564

PATIENT
  Age: 83 Year
  Sex: Female
  Weight: 58.957 kg

DRUGS (10)
  1. LIPITOR [Concomitant]
  2. METOPROLOL SUCCINATE [Concomitant]
  3. ZOFRAN [Concomitant]
  4. BLOOD TRANSFUSION, AUXILIARY PRODUCTS [Concomitant]
  5. FORTEO [Suspect]
     Indication: OSTEOPOROSIS
     Dosage: 20 UG, QD
     Route: 058
     Dates: start: 20110429
  6. VITAMIN D [Concomitant]
  7. JANUVIA [Concomitant]
  8. VITALUX [Concomitant]
  9. MICARDIS [Concomitant]
  10. INDAPAMIDE [Concomitant]

REACTIONS (1)
  - MYELOPROLIFERATIVE DISORDER [None]
